FAERS Safety Report 8902723 (Version 1)
Quarter: 2012Q4

REPORT INFORMATION
  Report Type: 
  Country: AR (occurrence: AR)
  Receive Date: 20121112
  Receipt Date: 20121112
  Transmission Date: 20130627
  Serious: Yes (Other)
  Sender: FDA-Public Use
  Company Number: PHHY2012AR103595

PATIENT
  Age: 63 Year
  Sex: Female

DRUGS (2)
  1. EXFORGE [Suspect]
     Indication: HYPERTENSION
     Dosage: 1 DF (160 mg vals and 5 mg amlo), daily
     Dates: end: 20121001
  2. EXFORGE [Suspect]
     Dates: start: 20121010

REACTIONS (5)
  - Myocardial fibrosis [Recovering/Resolving]
  - Eye pruritus [Not Recovered/Not Resolved]
  - Dysphonia [Not Recovered/Not Resolved]
  - Hypertension [Recovering/Resolving]
  - Blood pressure decreased [Recovering/Resolving]
